FAERS Safety Report 7256611-1 (Version None)
Quarter: 2011Q1

REPORT INFORMATION
  Report Type: 
  Country: None (occurrence: None)
  Receive Date: 20110129
  Receipt Date: 20100702
  Transmission Date: 20110831
  Serious: No
  Sender: FDA-Public Use
  Company Number: US-ABBOTT-10P-163-0654927-00

PATIENT
  Age: 57 Year
  Sex: Female

DRUGS (6)
  1. MULTI-VITAMIN [Concomitant]
     Indication: PRODUCT USED FOR UNKNOWN INDICATION
  2. PROVOCHAL [Concomitant]
     Indication: BLOOD CHOLESTEROL INCREASED
  3. ASPIRIN [Concomitant]
     Indication: PROPHYLAXIS
  4. PROZAC [Concomitant]
     Indication: ABDOMINAL PAIN UPPER
  5. HUMIRA [Suspect]
     Indication: PSORIASIS
     Dosage: LOADING DOSE 80MG
     Dates: start: 20100625
  6. PROZAC [Concomitant]
     Indication: DEPRESSION

REACTIONS (1)
  - INJECTION SITE PAIN [None]
